FAERS Safety Report 10061240 (Version 7)
Quarter: 2014Q4

REPORT INFORMATION
  Report Type: Spontaneous
  Country: CA (occurrence: CA)
  Receive Date: 20140407
  Receipt Date: 20141107
  Transmission Date: 20150528
  Serious: Yes (Other)
  Sender: FDA-Public Use
  Company Number: CA-ROCHE-1351305

PATIENT
  Age: 37 Year
  Sex: Female

DRUGS (12)
  1. TAXOTERE [Suspect]
     Active Substance: DOCETAXEL
     Indication: BREAST CANCER
     Route: 065
     Dates: start: 20131104
  2. ABILIFY [Concomitant]
     Active Substance: ARIPIPRAZOLE
  3. OMEPRAZOLE. [Concomitant]
     Active Substance: OMEPRAZOLE
  4. LYRICA [Concomitant]
     Active Substance: PREGABALIN
  5. HERCEPTIN [Suspect]
     Active Substance: TRASTUZUMAB
     Indication: HER-2 POSITIVE BREAST CANCER
     Route: 042
     Dates: start: 201311
  6. EFFEXOR [Concomitant]
     Active Substance: VENLAFAXINE HYDROCHLORIDE
  7. EZETROL [Concomitant]
     Active Substance: EZETIMIBE
  8. SYNTHROID [Concomitant]
     Active Substance: LEVOTHYROXINE SODIUM
  9. WELLBUTRIN [Concomitant]
     Active Substance: BUPROPION HYDROCHLORIDE
  10. PERJETA [Suspect]
     Active Substance: PERTUZUMAB
     Indication: HER-2 POSITIVE BREAST CANCER
     Route: 042
     Dates: start: 20140213, end: 20140313
  11. DECADRON [Concomitant]
     Active Substance: DEXAMETHASONE
  12. MORPHINE [Concomitant]
     Active Substance: MORPHINE

REACTIONS (11)
  - Hypoaesthesia [Not Recovered/Not Resolved]
  - Diarrhoea [Not Recovered/Not Resolved]
  - Swelling face [Unknown]
  - Malignant neoplasm progression [Unknown]
  - Neutrophil count increased [Unknown]
  - Blood bilirubin decreased [Unknown]
  - Fatigue [Unknown]
  - Lymphocyte count decreased [Unknown]
  - Toxicity to various agents [Unknown]
  - White blood cell count increased [Unknown]
  - Paraesthesia [Not Recovered/Not Resolved]

NARRATIVE: CASE EVENT DATE: 20140122
